FAERS Safety Report 5551116-8 (Version None)
Quarter: 2007Q4

REPORT INFORMATION
  Report Type: 
  Country: None (occurrence: None)
  Receive Date: 20071212
  Receipt Date: 20071211
  Transmission Date: 20080405
  Serious: Yes (Disabling, Other)
  Sender: FDA-Public Use
  Company Number: B0492071A

PATIENT
  Age: 43 Year
  Sex: Male
  Weight: 57.2 kg

DRUGS (5)
  1. KIVEXA [Suspect]
     Indication: DRUG USE FOR UNKNOWN INDICATION
     Route: 048
     Dates: start: 20040729, end: 20070201
  2. EPIVIR [Concomitant]
     Dosage: 300MG PER DAY
     Route: 048
     Dates: start: 19990602, end: 20040729
  3. VIRAMUNE [Concomitant]
     Dosage: 400MG PER DAY
     Route: 048
     Dates: start: 19990602
  4. STAVUDINE [Concomitant]
     Dosage: 60MG PER DAY
     Route: 048
     Dates: start: 19990602, end: 20040729
  5. TRUVADA [Concomitant]
     Route: 048
     Dates: start: 20070201

REACTIONS (1)
  - MOUTH ULCERATION [None]
